FAERS Safety Report 16191067 (Version 1)
Quarter: 2019Q2

REPORT INFORMATION
  Report Type: Spontaneous
  Country: CM (occurrence: CM)
  Receive Date: 20190412
  Receipt Date: 20190412
  Transmission Date: 20190711
  Serious: Yes (Life-Threatening)
  Sender: FDA-Public Use
  Company Number: PHHY2019CM083405

PATIENT
  Age: 52 Year
  Sex: Male

DRUGS (3)
  1. BINOZYT [Suspect]
     Active Substance: AZITHROMYCIN
     Indication: DUODENAL ULCER
  2. BINOZYT [Suspect]
     Active Substance: AZITHROMYCIN
     Indication: GASTRIC ULCER
     Dosage: 500 MG, (1 G) QD
     Route: 048
  3. METRONIDAZOLE. [Concomitant]
     Active Substance: METRONIDAZOLE
     Indication: PRODUCT USED FOR UNKNOWN INDICATION
     Dosage: UNK
     Route: 065

REACTIONS (2)
  - Gastrooesophageal reflux disease [Recovered/Resolved]
  - Asthenia [Recovered/Resolved]
